FAERS Safety Report 13014368 (Version 1)
Quarter: 2016Q4

REPORT INFORMATION
  Report Type: Spontaneous
  Country: US (occurrence: US)
  Receive Date: 20161209
  Receipt Date: 20161209
  Transmission Date: 20170207
  Serious: Yes (Hospitalization, Other)
  Sender: FDA-Public Use
  Company Number: US-TEVA-719285USA

PATIENT
  Sex: Female

DRUGS (3)
  1. COPAXONE [Suspect]
     Active Substance: GLATIRAMER ACETATE
     Dosage: UNKNOWN FORM STRENGTH
  2. BABY ASPIRIN [Concomitant]
     Active Substance: ASPIRIN
     Dosage: 20 MINUTES PRIOR TO TAKING TECFIDERA
  3. TECFIDERA [Suspect]
     Active Substance: DIMETHYL FUMARATE
     Dates: start: 201602, end: 2016

REACTIONS (11)
  - Malaise [Recovering/Resolving]
  - Skin reaction [Unknown]
  - Sepsis [Recovering/Resolving]
  - Back pain [Recovering/Resolving]
  - Viral infection [Unknown]
  - Pyrexia [Recovering/Resolving]
  - Apparent death [Recovering/Resolving]
  - Abdominal pain upper [Recovering/Resolving]
  - Liver function test increased [Recovering/Resolving]
  - Body temperature fluctuation [Recovering/Resolving]
  - Adverse reaction [Recovered/Resolved]

NARRATIVE: CASE EVENT DATE: 2016
